FAERS Safety Report 7801470-9 (Version None)
Quarter: 2011Q4

REPORT INFORMATION
  Report Type: 
  Country: None (occurrence: None)
  Receive Date: 20111007
  Receipt Date: 20110928
  Transmission Date: 20120403
  Serious: Yes (Hospitalization)
  Sender: FDA-Public Use
  Company Number: CA-JNJFOC-20110409369

PATIENT
  Sex: Female

DRUGS (12)
  1. AZULFIDINE [Concomitant]
  2. GABAPENTIN [Concomitant]
  3. MORPHINE [Concomitant]
  4. ATROVENT [Concomitant]
  5. BACLOFEN [Concomitant]
  6. ADVAIR DISKUS 100/50 [Concomitant]
  7. PLAQUENIL [Concomitant]
  8. PREDNISONE [Concomitant]
  9. VENTOLIN [Concomitant]
  10. CELEBREX [Concomitant]
  11. SIMPONI [Suspect]
     Indication: PRODUCT USED FOR UNKNOWN INDICATION
     Route: 058
     Dates: start: 20100618
  12. ESTROGENIC SUBSTANCE [Concomitant]

REACTIONS (1)
  - CERVICAL VERTEBRAL FRACTURE [None]
